FAERS Safety Report 16918491 (Version 3)
Quarter: 2019Q4

REPORT INFORMATION
  Report Type: Spontaneous
  Country: JP (occurrence: JP)
  Receive Date: 20191015
  Receipt Date: 20191226
  Transmission Date: 20200122
  Serious: Yes (Death, Hospitalization, Other)
  Sender: FDA-Public Use
  Company Number: JP-JNJFOC-20191013661

PATIENT
  Age: 70 Year
  Sex: Male
  Weight: 88 kg

DRUGS (14)
  1. RISPERIDONE. [Suspect]
     Active Substance: RISPERIDONE
     Indication: SCHIZOPHRENIA
     Dosage: RESTLESS,UP TO 1 TIME DAILY
     Route: 048
     Dates: start: 20190719, end: 20190724
  2. ISOTONIC SODIUM CHLORIDE SOLUTION [Concomitant]
     Active Substance: SODIUM CHLORIDE
     Route: 065
     Dates: start: 20190730, end: 20190730
  3. LACTEC G [Concomitant]
     Active Substance: CALCIUM CHLORIDE\POTASSIUM CHLORIDE\SODIUM CHLORIDE\SODIUM LACTATE\SORBITOL
     Route: 041
     Dates: start: 20190729, end: 20190729
  4. OYPALOMIN [Concomitant]
     Active Substance: IOPAMIDOL
     Route: 065
     Dates: start: 20190730, end: 20190730
  5. YUEKIN KEEP [Concomitant]
     Route: 041
     Dates: start: 20190729, end: 20190729
  6. RIVOTRIL [Suspect]
     Active Substance: CLONAZEPAM
     Indication: PRODUCT USED FOR UNKNOWN INDICATION
     Route: 048
     Dates: start: 20180703, end: 20190724
  7. DIOVAN [Suspect]
     Active Substance: VALSARTAN
     Indication: PRODUCT USED FOR UNKNOWN INDICATION
     Route: 048
     Dates: start: 20190719, end: 20190724
  8. BENZALIN                           /00036201/ [Suspect]
     Active Substance: NITRAZEPAM
     Indication: PRODUCT USED FOR UNKNOWN INDICATION
     Route: 048
     Dates: end: 20190724
  9. XEPLION [Suspect]
     Active Substance: PALIPERIDONE PALMITATE
     Route: 030
     Dates: start: 20180704, end: 20180704
  10. BIOFERMIN T [Suspect]
     Active Substance: DIETARY SUPPLEMENT\PROBIOTICS
     Route: 048
     Dates: start: 20190719, end: 20190724
  11. BIOFERMIN T [Suspect]
     Active Substance: DIETARY SUPPLEMENT\PROBIOTICS
     Indication: PRODUCT USED FOR UNKNOWN INDICATION
     Route: 048
     Dates: start: 20190703
  12. XEPLION [Suspect]
     Active Substance: PALIPERIDONE PALMITATE
     Indication: SCHIZOPHRENIA
     Route: 030
     Dates: start: 20180808, end: 20190712
  13. XEPLION [Suspect]
     Active Substance: PALIPERIDONE PALMITATE
     Route: 030
     Dates: start: 20180713
  14. BEZAFIBRATE [Suspect]
     Active Substance: BEZAFIBRATE
     Indication: PRODUCT USED FOR UNKNOWN INDICATION
     Route: 048
     Dates: start: 20190719, end: 20190724

REACTIONS (8)
  - Cardiac failure acute [Fatal]
  - Muscular weakness [Fatal]
  - Blood pressure increased [Fatal]
  - Arthralgia [Fatal]
  - Urinary incontinence [Fatal]
  - Pulmonary embolism [Fatal]
  - Dysarthria [Fatal]
  - Bundle branch block right [Fatal]

NARRATIVE: CASE EVENT DATE: 20190724
